FAERS Safety Report 8491804-7 (Version None)
Quarter: 2012Q3

REPORT INFORMATION
  Report Type: 
  Country: None (occurrence: None)
  Receive Date: 20120706
  Receipt Date: 20120625
  Transmission Date: 20120928
  Serious: Yes (Hospitalization, Other)
  Sender: FDA-Public Use
  Company Number: US-PERRIGO-12US005502

PATIENT
  Sex: Female

DRUGS (1)
  1. PHENYLEPHRINE HCL [Suspect]
     Indication: NASAL CONGESTION
     Dosage: 20 MG, PRN
     Route: 048
     Dates: start: 20120402, end: 20120602

REACTIONS (4)
  - HEADACHE [None]
  - INCORRECT DOSE ADMINISTERED [None]
  - VASOSPASM [None]
  - SUBARACHNOID HAEMORRHAGE [None]
